FAERS Safety Report 7693061-8 (Version None)
Quarter: 2011Q3

REPORT INFORMATION
  Report Type: 
  Country: None (occurrence: None)
  Receive Date: 20110819
  Receipt Date: 20110817
  Transmission Date: 20111222
  Serious: Yes (Death)
  Sender: FDA-Public Use
  Company Number: GB-PFIZER INC-2011189468

PATIENT
  Age: 41 Year

DRUGS (4)
  1. ALCOHOL [Suspect]
     Dosage: UNK
  2. PREGABALIN [Suspect]
     Dosage: UNK
  3. COCAINE [Suspect]
     Dosage: UNK
  4. PETHIDINE [Suspect]
     Dosage: UNK

REACTIONS (1)
  - SUDDEN DEATH [None]
